FAERS Safety Report 18982201 (Version 1)
Quarter: 2021Q1

REPORT INFORMATION
  Report Type: Spontaneous
  Country: TH (occurrence: TH)
  Receive Date: 20210304
  Receipt Date: 20210304
  Transmission Date: 20210420
  Serious: Yes (Other)
  Sender: FDA-Public Use
  Company Number: TH-FRESENIUS KABI-FK202102002

PATIENT
  Age: 78 Year
  Sex: Male

DRUGS (8)
  1. FLUOROURACIL (MANUFACTURER UNKNOWN) [Suspect]
     Active Substance: FLUOROURACIL
     Dosage: REDUCED DOSE OF FLUOROURACIL 600 MG/M2 CONTINUOUS INFUSION
     Route: 065
  2. OXALIPLATIN (MANUFACTURER UNKNOWN) [Suspect]
     Active Substance: OXALIPLATIN
     Indication: COLORECTAL CANCER RECURRENT
     Dosage: CYCLE 1
     Route: 065
  3. LEUCOVORIN CALCIUM (MANUFACTURER UNKNOWN) [Suspect]
     Active Substance: LEUCOVORIN CALCIUM
     Indication: COLORECTAL CANCER RECURRENT
     Dosage: CYCLE 1
     Route: 065
  4. FLUOROURACIL (MANUFACTURER UNKNOWN) [Suspect]
     Active Substance: FLUOROURACIL
     Indication: COLORECTAL CANCER RECURRENT
     Dosage: CYCLE 1: 400 MG/M2 BOLUS
     Route: 042
  5. FLUOROURACIL (MANUFACTURER UNKNOWN) [Suspect]
     Active Substance: FLUOROURACIL
     Dosage: CYCLE 1 1200 MG/M2 CONTINUOUS INFUSION
     Route: 042
  6. FLUOROURACIL (MANUFACTURER UNKNOWN) [Suspect]
     Active Substance: FLUOROURACIL
     Dosage: CYCLE2: 400 MG/M2 BOLUS
     Route: 065
  7. FLUOROURACIL (MANUFACTURER UNKNOWN) [Suspect]
     Active Substance: FLUOROURACIL
     Dosage: CYCLE 3: FULL DOSE OF FLUOROURACIL
     Route: 065
  8. OXALIPLATIN (MANUFACTURER UNKNOWN) [Suspect]
     Active Substance: OXALIPLATIN
     Dosage: CYCLE 3
     Route: 065

REACTIONS (3)
  - Acute kidney injury [Recovering/Resolving]
  - Encephalopathy [Recovering/Resolving]
  - Lactic acidosis [Recovering/Resolving]
